FAERS Safety Report 5511196-2 (Version None)
Quarter: 2007Q4

REPORT INFORMATION
  Report Type: 
  Country: None (occurrence: None)
  Receive Date: 20071109
  Receipt Date: 20071030
  Transmission Date: 20080405
  Serious: No
  Sender: FDA-Public Use
  Company Number: NL-ELI_LILLY_AND_COMPANY-NL200710003099

PATIENT
  Sex: Male
  Weight: 70 kg

DRUGS (8)
  1. CIALIS [Suspect]
     Indication: ERECTILE DYSFUNCTION
     Dosage: 20 MG, UNK
     Route: 048
     Dates: start: 20071007
  2. XATRAL /00975301/ [Concomitant]
     Dosage: UNK, DAILY (1/D)
     Route: 065
     Dates: start: 20050101
  3. RABEPRAZOLE SODIUM [Concomitant]
  4. PANCREASE [Concomitant]
     Dosage: 3 X 3/D
     Route: 065
     Dates: start: 20060701
  5. IRBESARTAN [Concomitant]
  6. VIAGRA [Concomitant]
  7. LANTUS [Concomitant]
     Dosage: 8 I.E., DAILY (1/D)
     Route: 065
  8. HUMALOG [Concomitant]
     Indication: DIABETES MELLITUS
     Dosage: 24 I.E., DAILY (1/D)
     Route: 065

REACTIONS (3)
  - BACK PAIN [None]
  - INTRAOCULAR PRESSURE INCREASED [None]
  - MYALGIA [None]
